FAERS Safety Report 9409121 (Version 1)
Quarter: 2013Q2

REPORT INFORMATION
  Report Type: Spontaneous
  Country: US (occurrence: None)
  Receive Date: 20130417
  Receipt Date: 20130417
  Transmission Date: 20140414
  Serious: Yes (Other)
  Sender: FDA-Public Use
  Company Number: 2012SA082555

PATIENT
  Age: 59 Year
  Sex: Male

DRUGS (5)
  1. LANTUS SOLOSTAR [Suspect]
     Indication: TYPE 2 DIABETES MELLITUS
     Route: 051
     Dates: start: 20120909
  2. SOLOSTAR [Suspect]
     Indication: TYPE 2 DIABETES MELLITUS
     Dates: start: 20120909
  3. BUSPAR [Concomitant]
  4. ENALAPRIL [Concomitant]
  5. FELDENE [Concomitant]

REACTIONS (6)
  - Injection site pain [None]
  - Injection site pain [None]
  - Blood pressure increased [None]
  - Blindness [None]
  - Vascular rupture [None]
  - Eye haemorrhage [None]
